FAERS Safety Report 7945752-9 (Version None)
Quarter: 2011Q4

REPORT INFORMATION
  Report Type: 
  Country: None (occurrence: None)
  Receive Date: 20111129
  Receipt Date: 20111121
  Transmission Date: 20120403
  Serious: Yes (Death)
  Sender: FDA-Public Use
  Company Number: US-ROCHE-1011590

PATIENT
  Sex: Male

DRUGS (1)
  1. ZELBORAF [Suspect]
     Indication: MALIGNANT MELANOMA
     Route: 048

REACTIONS (8)
  - NAUSEA [None]
  - VISION BLURRED [None]
  - VOMITING [None]
  - FATIGUE [None]
  - BLINDNESS [None]
  - DECREASED APPETITE [None]
  - OCULAR HYPERAEMIA [None]
  - DEATH [None]
